FAERS Safety Report 18734205 (Version 5)
Quarter: 2021Q1

REPORT INFORMATION
  Report Type: Report from Study
  Country: SE (occurrence: SE)
  Receive Date: 20210113
  Receipt Date: 20210201
  Transmission Date: 20210419
  Serious: Yes (Life-Threatening, Hospitalization)
  Sender: FDA-Public Use
  Company Number: SE-ROCHE-2747204

PATIENT
  Age: 70 Year
  Sex: Male

DRUGS (9)
  1. OBINUTUZUMAB. [Suspect]
     Active Substance: OBINUTUZUMAB
     Route: 042
     Dates: start: 20161018, end: 20161018
  2. ACP?196 [Suspect]
     Active Substance: ACALABRUTINIB
     Route: 048
     Dates: start: 20200909, end: 20201202
  3. ACP?196 [Suspect]
     Active Substance: ACALABRUTINIB
     Route: 048
     Dates: start: 20210119, end: 20210119
  4. ACP?196 [Suspect]
     Active Substance: ACALABRUTINIB
     Route: 048
     Dates: start: 20201203, end: 20210118
  5. TROMBYL [Concomitant]
     Active Substance: ASPIRIN
  6. FLUCLOXACILLIN [Concomitant]
     Active Substance: FLUCLOXACILLIN
  7. ACP?196 [Suspect]
     Active Substance: ACALABRUTINIB
     Indication: CHRONIC LYMPHOCYTIC LEUKAEMIA
     Route: 048
     Dates: start: 20160426, end: 20170119
  8. OBINUTUZUMAB. [Suspect]
     Active Substance: OBINUTUZUMAB
     Indication: CHRONIC LYMPHOCYTIC LEUKAEMIA
     Route: 042
     Dates: start: 20160524, end: 20160524
  9. LOSARTAN. [Concomitant]
     Active Substance: LOSARTAN

REACTIONS (2)
  - Cholestasis [Recovered/Resolved]
  - Adenocarcinoma pancreas [Recovered/Resolved]

NARRATIVE: CASE EVENT DATE: 20210104
